FAERS Safety Report 5502932-X (Version None)
Quarter: 2007Q4

REPORT INFORMATION
  Report Type: 
  Country: None (occurrence: None)
  Receive Date: 20071031
  Receipt Date: 20071025
  Transmission Date: 20080405
  Serious: Yes (Hospitalization)
  Sender: FDA-Public Use
  Company Number: B0486641A

PATIENT
  Age: 52 Year
  Sex: Male
  Weight: 89 kg

DRUGS (4)
  1. AVANDAMET [Suspect]
     Route: 048
     Dates: start: 20060201, end: 20061001
  2. SOLOSA [Concomitant]
     Route: 048
  3. GLUCOPHAGE [Concomitant]
     Route: 048
  4. VALPRESSION [Concomitant]
     Route: 048

REACTIONS (1)
  - ACUTE MYOCARDIAL INFARCTION [None]
